FAERS Safety Report 23738205 (Version 2)
Quarter: 2024Q2

REPORT INFORMATION
  Report Type: Spontaneous
  Country: US (occurrence: US)
  Receive Date: 20240412
  Receipt Date: 20240516
  Transmission Date: 20240715
  Serious: No
  Sender: FDA-Public Use
  Company Number: US-MYLANLABS-2024M1032637

PATIENT
  Sex: Female

DRUGS (1)
  1. TYRVAYA [Suspect]
     Active Substance: VARENICLINE TARTRATE
     Indication: Dry eye
     Dosage: UNK (ONE SPRAY IN EACH NOSTRIL EVERY 12 HOURS)
     Route: 045
     Dates: start: 2024

REACTIONS (4)
  - Sneezing [Recovering/Resolving]
  - Drug ineffective [Unknown]
  - Product delivery mechanism issue [Unknown]
  - Therapeutic response unexpected [Unknown]

NARRATIVE: CASE EVENT DATE: 20240101
